FAERS Safety Report 4283839-5 (Version None)
Quarter: 2004Q1

REPORT INFORMATION
  Report Type: 
  Country: None (occurrence: None)
  Receive Date: 20040130
  Receipt Date: 20040121
  Transmission Date: 20041129
  Serious: Yes (Hospitalization)
  Sender: FDA-Public Use
  Company Number: HQWYE927229SEP03

PATIENT
  Age: 57 Year
  Sex: Male

DRUGS (2)
  1. RAPAMUNE [Suspect]
     Indication: PROPHYLAXIS AGAINST TRANSPLANT REJECTION
     Dosage: 2 MG 1X PER 1 DAY; ORAL
     Route: 048
     Dates: start: 19990328, end: 20031130
  2. LIPITOR [Concomitant]

REACTIONS (13)
  - APLASTIC ANAEMIA [None]
  - ASPARTATE AMINOTRANSFERASE INCREASED [None]
  - ASTHENIA [None]
  - BLOOD CREATININE INCREASED [None]
  - BLOOD PHOSPHORUS DECREASED [None]
  - BLOOD TRIGLYCERIDES INCREASED [None]
  - CREATININE RENAL CLEARANCE DECREASED [None]
  - HYPERCALCAEMIA [None]
  - HYPERPARATHYROIDISM TERTIARY [None]
  - LOW DENSITY LIPOPROTEIN DECREASED [None]
  - MICROCYTIC ANAEMIA [None]
  - PROTEIN TOTAL DECREASED [None]
  - WEIGHT DECREASED [None]
